FAERS Safety Report 6699572-6 (Version None)
Quarter: 2010Q2

REPORT INFORMATION
  Report Type: 
  Country: None (occurrence: None)
  Receive Date: 20100427
  Receipt Date: 20100427
  Transmission Date: 20101027
  Serious: Yes (Other)
  Sender: FDA-Public Use
  Company Number: None

PATIENT
  Age: 28 Year
  Sex: Female
  Weight: 64.8644 kg

DRUGS (2)
  1. PRISTIQ [Suspect]
     Indication: ANXIETY
     Dosage: 50 MG. EVERY OTHER DAY PO
     Route: 048
     Dates: start: 20091217, end: 20100422
  2. PRISTIQ [Suspect]
     Indication: DEPRESSION
     Dosage: 50 MG. EVERY OTHER DAY PO
     Route: 048
     Dates: start: 20091217, end: 20100422

REACTIONS (7)
  - CONDITION AGGRAVATED [None]
  - FEELING ABNORMAL [None]
  - FEELING OF BODY TEMPERATURE CHANGE [None]
  - HYPERHIDROSIS [None]
  - IRRITABILITY [None]
  - NIGHT SWEATS [None]
  - UNEVALUABLE EVENT [None]
